FAERS Safety Report 9549903 (Version 2)
Quarter: 2013Q4

REPORT INFORMATION
  Report Type: Spontaneous
  Country: US (occurrence: US)
  Receive Date: 20130924
  Receipt Date: 20131002
  Transmission Date: 20140711
  Serious: Yes (Death, Other)
  Sender: FDA-Public Use
  Company Number: US-GILEAD-2013-0084040

PATIENT
  Sex: Female

DRUGS (3)
  1. LETAIRIS [Suspect]
     Indication: PULMONARY ARTERIAL HYPERTENSION
     Dosage: 10 MG, QD
     Route: 048
     Dates: start: 20130425, end: 20130831
  2. REMODULIN [Concomitant]
  3. REVATIO [Concomitant]

REACTIONS (3)
  - Septic shock [Fatal]
  - Pulmonary arterial hypertension [Unknown]
  - Staphylococcal infection [Unknown]
